FAERS Safety Report 4771092-5 (Version None)
Quarter: 2005Q3

REPORT INFORMATION
  Report Type: 
  Country: None (occurrence: None)
  Receive Date: 20050914
  Receipt Date: 20050901
  Transmission Date: 20060218
  Serious: Yes (Death)
  Sender: FDA-Public Use
  Company Number: US-2005-018450

PATIENT
  Age: 60 Year
  Sex: Male

DRUGS (1)
  1. ULTRAVIST PHARMACY BULK PACKAGE (300 MG/ML) (IOPROMIDE) INJECTION [Suspect]
     Indication: COMPUTERISED TOMOGRAM
     Dosage: 100 ML, 1DOSE, INTRAVENOUS
     Route: 042
     Dates: start: 20050901, end: 20050901

REACTIONS (2)
  - CARDIO-RESPIRATORY ARREST [None]
  - CONVULSION [None]
